FAERS Safety Report 12174017 (Version 1)
Quarter: 2016Q1

REPORT INFORMATION
  Report Type: Spontaneous
  Country: US (occurrence: None)
  Receive Date: 20160311
  Receipt Date: 20160311
  Transmission Date: 20160526
  Serious: No
  Sender: FDA-Public Use
  Company Number: None

PATIENT
  Age: 26 Year
  Sex: Male
  Weight: 90.72 kg

DRUGS (3)
  1. AMPHETAMINE SALTS [Suspect]
     Active Substance: AMPHETAMINE ASPARTATE\AMPHETAMINE SULFATE\DEXTROAMPHETAMINE SACCHARATE\DEXTROAMPHETAMINE SULFATE
     Indication: ATTENTION DEFICIT/HYPERACTIVITY DISORDER
     Route: 048
     Dates: start: 20160209, end: 20160309
  2. LEXAPRO [Concomitant]
     Active Substance: ESCITALOPRAM OXALATE
  3. ADDERALL XR [Concomitant]
     Active Substance: AMPHETAMINE ASPARTATE\AMPHETAMINE SULFATE\DEXTROAMPHETAMINE SACCHARATE\DEXTROAMPHETAMINE SULFATE

REACTIONS (16)
  - Sexual dysfunction [None]
  - Dry mouth [None]
  - Condition aggravated [None]
  - Headache [None]
  - Anxiety [None]
  - Fatigue [None]
  - Irritability [None]
  - Nightmare [None]
  - Dizziness [None]
  - Hypoaesthesia [None]
  - Sleep disorder [None]
  - Pyrexia [None]
  - Nausea [None]
  - Depression [None]
  - Decreased appetite [None]
  - Product substitution issue [None]

NARRATIVE: CASE EVENT DATE: 20160209
